FAERS Safety Report 19668698 (Version 6)
Quarter: 2022Q2

REPORT INFORMATION
  Report Type: Report from Study
  Country: US (occurrence: US)
  Receive Date: 20210806
  Receipt Date: 20220401
  Transmission Date: 20220720
  Serious: Yes (Hospitalization)
  Sender: FDA-Public Use
  Company Number: NVSC2021US174340

PATIENT
  Sex: Female

DRUGS (2)
  1. ENTRESTO [Suspect]
     Active Substance: SACUBITRIL\VALSARTAN
     Indication: Cardiac failure
     Dosage: 100 MG, BID
     Route: 048
  2. ENTRESTO [Suspect]
     Active Substance: SACUBITRIL\VALSARTAN
     Dosage: UNK, BID
     Route: 048

REACTIONS (15)
  - Pericardial effusion [Unknown]
  - Dyspnoea [Unknown]
  - COVID-19 [Unknown]
  - Hypogeusia [Recovered/Resolved]
  - Visual impairment [Unknown]
  - Chest pain [Unknown]
  - Weight increased [Unknown]
  - Arthritis [Unknown]
  - Head injury [Unknown]
  - Thirst [Unknown]
  - Fall [Unknown]
  - Fatigue [Unknown]
  - Pruritus [Unknown]
  - Cough [Unknown]
  - Wrong technique in product usage process [Unknown]
